FAERS Safety Report 22033406 (Version 2)
Quarter: 2023Q2

REPORT INFORMATION
  Report Type: Spontaneous
  Country: US (occurrence: US)
  Receive Date: 20230224
  Receipt Date: 20230407
  Transmission Date: 20230721
  Serious: No
  Sender: FDA-Public Use
  Company Number: US-PFIZER INC-202300081014

PATIENT
  Age: 95 Year
  Sex: Female

DRUGS (3)
  1. ERYTHROMYCIN [Suspect]
     Active Substance: ERYTHROMYCIN
     Dosage: UNK
  2. CELEBREX [Suspect]
     Active Substance: CELECOXIB
     Dosage: UNK
  3. FOSAMAX [Suspect]
     Active Substance: ALENDRONATE SODIUM
     Dosage: UNK

REACTIONS (2)
  - Drug hypersensitivity [Not Recovered/Not Resolved]
  - Abdominal discomfort [Not Recovered/Not Resolved]
